FAERS Safety Report 4323105-2 (Version None)
Quarter: 2004Q1

REPORT INFORMATION
  Report Type: 
  Country: None (occurrence: None)
  Receive Date: 20040325
  Receipt Date: 20030904
  Transmission Date: 20041129
  Serious: No
  Sender: FDA-Public Use
  Company Number: US-BRISTOL-MYERS SQUIBB COMPANY-12374658

PATIENT
  Age: 30 Year
  Sex: Female
  Weight: 53 kg

DRUGS (1)
  1. DOVONEX SCALP SOLN 0.005% [Suspect]
     Indication: PSORIASIS
     Route: 061
     Dates: start: 20030801, end: 20030801

REACTIONS (1)
  - URTICARIA [None]
